FAERS Safety Report 6167739-1 (Version None)
Quarter: 2009Q2

REPORT INFORMATION
  Report Type: 
  Country: None (occurrence: None)
  Receive Date: 20090422
  Receipt Date: 20090402
  Transmission Date: 20091009
  Serious: Yes (Hospitalization)
  Sender: FDA-Public Use
  Company Number: 000#5#2008-00123

PATIENT
  Age: 69 Year
  Sex: Male

DRUGS (13)
  1. ROTIGOTINE (ROTIGOTINE) (LOT#S: 512207110004) [Suspect]
     Indication: PARKINSON'S DISEASE
     Dosage: TRANSDERMAL PATCH 14 MG, QD, DAILY TRANSDERMAL
     Route: 062
     Dates: start: 20020909, end: 20080612
  2. ATIVAN [Concomitant]
  3. DEPRENYL /00500001/(SELEGILINE) [Concomitant]
  4. GENTAMYCIN-MP (GENTAMICIN SULFATE) [Concomitant]
  5. TOBRAMYCIN [Concomitant]
  6. TOBRADEX /01042701/ (TOBRADEX /01042701/) [Concomitant]
  7. TETANUS ANTITOXIN (TETANUS ANTITOXIN) [Concomitant]
  8. EXTRA STRENGTH TYLENOL [Concomitant]
  9. SINUTAB /00790101/(RINUTAN) [Concomitant]
  10. ARTANE [Concomitant]
  11. DENTOMYCIN /00232402/ (MINOCYCLINE HYDROCHLORIDE) [Concomitant]
  12. AMITRIPTYLINE HYDROCHLORIDE [Concomitant]
  13. NAPROSYN /00256201/ (NAPROXEN) [Concomitant]

REACTIONS (2)
  - ACUTE MYOCARDIAL INFARCTION [None]
  - DYSPHAGIA [None]
